FAERS Safety Report 22681097 (Version 3)
Quarter: 2025Q2

REPORT INFORMATION
  Report Type: Report from Study
  Country: CA (occurrence: CA)
  Receive Date: 20230707
  Receipt Date: 20250624
  Transmission Date: 20250716
  Serious: Yes (Other)
  Sender: GLAXOSMITHKLINE
  Company Number: CA-GLAXOSMITHKLINE-CA2023092295

PATIENT
  Age: 69 Year
  Sex: Female

DRUGS (3)
  1. MEPOLIZUMAB [Suspect]
     Active Substance: MEPOLIZUMAB
     Indication: Asthma
     Dosage: 100 MG, Q4W
  2. MEPOLIZUMAB [Suspect]
     Active Substance: MEPOLIZUMAB
     Indication: Asthma
     Dosage: 100 MG, Q4W
  3. ADVAIR HFA [Concomitant]
     Active Substance: FLUTICASONE PROPIONATE\SALMETEROL XINAFOATE
     Indication: Product used for unknown indication

REACTIONS (6)
  - Diverticulitis [Unknown]
  - Haemorrhoids [Unknown]
  - Sinusitis [Recovered/Resolved]
  - Cough [Not Recovered/Not Resolved]
  - Dyspnoea [Not Recovered/Not Resolved]
  - Inappropriate schedule of product administration [Unknown]

NARRATIVE: CASE EVENT DATE: 20231111
